FAERS Safety Report 5703740-7 (Version None)
Quarter: 2008Q2

REPORT INFORMATION
  Report Type: 
  Country: None (occurrence: None)
  Receive Date: 20080413
  Receipt Date: 20080331
  Transmission Date: 20081010
  Serious: Yes (Other)
  Sender: FDA-Public Use
  Company Number: PHHY2008GB04339

PATIENT
  Age: 65 Year
  Sex: Male

DRUGS (3)
  1. GLEEVEC [Suspect]
     Indication: CHRONIC MYELOID LEUKAEMIA
     Dosage: 400 MG, QD
     Route: 048
     Dates: start: 20040217
  2. GLEEVEC [Suspect]
     Dosage: 600 MG, QD
     Route: 048
     Dates: start: 20040217
  3. HYDROXYUREA [Concomitant]
     Dates: start: 20031110, end: 20050316

REACTIONS (6)
  - ATRIOVENTRICULAR BLOCK COMPLETE [None]
  - CARDIAC PACEMAKER INSERTION [None]
  - CONSTIPATION [None]
  - FATIGUE [None]
  - HEADACHE [None]
  - STOMACH DISCOMFORT [None]
